FAERS Safety Report 13142364 (Version 1)
Quarter: 2017Q1

REPORT INFORMATION
  Report Type: Report from Study
  Country: CO (occurrence: CO)
  Receive Date: 20170124
  Receipt Date: 20170124
  Transmission Date: 20170428
  Serious: Yes (Hospitalization, Other)
  Sender: FDA-Public Use
  Company Number: CO-BRISTOL-MYERS SQUIBB COMPANY-BMS-2017-002974

PATIENT
  Age: 37 Year
  Sex: Female

DRUGS (1)
  1. DASATINIB [Suspect]
     Active Substance: DASATINIB
     Indication: PRODUCT USED FOR UNKNOWN INDICATION
     Dosage: 140 MG, QD
     Route: 048
     Dates: start: 20160728

REACTIONS (3)
  - Bone marrow disorder [Recovering/Resolving]
  - Diarrhoea [Unknown]
  - Affect lability [Unknown]

NARRATIVE: CASE EVENT DATE: 20170109
